FAERS Safety Report 7559272-7 (Version None)
Quarter: 2011Q2

REPORT INFORMATION
  Report Type: 
  Country: None (occurrence: None)
  Receive Date: 20110617
  Receipt Date: 20110617
  Transmission Date: 20111010
  Serious: No
  Sender: FDA-Public Use
  Company Number: None

PATIENT
  Age: 13 Year
  Sex: Male

DRUGS (1)
  1. ZITHROMAX [Suspect]
     Dates: start: 20090302, end: 20090306

REACTIONS (5)
  - LIVER INJURY [None]
  - PRURITUS GENERALISED [None]
  - HEPATIC ENZYME INCREASED [None]
  - JAUNDICE [None]
  - BLOOD BILIRUBIN INCREASED [None]
